FAERS Safety Report 8560892-1 (Version None)
Quarter: 2012Q3

REPORT INFORMATION
  Report Type: 
  Country: None (occurrence: None)
  Receive Date: 20120802
  Receipt Date: 20120721
  Transmission Date: 20120928
  Serious: Yes (Other)
  Sender: FDA-Public Use
  Company Number: US-PFIZER INC-2012154967

PATIENT
  Sex: Female
  Weight: 63.2 kg

DRUGS (7)
  1. CRIZOTINIB [Suspect]
     Dosage: 250 MG, 2X/DAY
     Route: 048
     Dates: start: 20120618, end: 20120619
  2. KEPPRA [Concomitant]
     Indication: CONVULSION PROPHYLAXIS
     Dosage: 500 MG, 2X/DAY
     Route: 048
     Dates: start: 20120404
  3. MELATONIN [Concomitant]
     Indication: SLEEP DISORDER
     Dosage: 500 UG, UNK
     Route: 048
     Dates: start: 20110611
  4. BIOTIN [Concomitant]
     Indication: PROPHYLAXIS
     Dosage: 300 UG, 1X/DAY
     Route: 048
     Dates: start: 20090901
  5. CRIZOTINIB [Suspect]
     Indication: NON-SMALL CELL LUNG CANCER
     Dosage: 250 MG, 2X/DAY
     Route: 048
     Dates: start: 20100922, end: 20120517
  6. XANAX [Concomitant]
     Indication: ANXIETY
     Dosage: 0.5 MG, UNK
     Route: 048
     Dates: start: 20081001
  7. OXYCODONE [Concomitant]
     Indication: PAIN
     Dosage: 5 MG, UNK
     Route: 048
     Dates: start: 20111210

REACTIONS (1)
  - TUMOUR FLARE [None]
